FAERS Safety Report 12190378 (Version 1)
Quarter: 2016Q1

REPORT INFORMATION
  Report Type: Spontaneous
  Country: US (occurrence: US)
  Receive Date: 20160318
  Receipt Date: 20160318
  Transmission Date: 20160526
  Serious: Yes (Other)
  Sender: FDA-Public Use
  Company Number: US-BAYER-2016-049757

PATIENT
  Age: 68 Year
  Sex: Female

DRUGS (1)
  1. GADAVIST [Suspect]
     Active Substance: GADOBUTROL
     Indication: NUCLEAR MAGNETIC RESONANCE IMAGING
     Dosage: 6 ML, WEIGHT BASED, ONCE
     Route: 042
     Dates: start: 20160305, end: 20160305

REACTIONS (2)
  - Urticaria [None]
  - Off label use [None]

NARRATIVE: CASE EVENT DATE: 20160305
